FAERS Safety Report 9750180 (Version 2)
Quarter: 2014Q1

REPORT INFORMATION
  Report Type: Spontaneous
  Country: US (occurrence: US)
  Receive Date: 20131212
  Receipt Date: 20140108
  Transmission Date: 20141002
  Serious: Yes (Hospitalization)
  Sender: FDA-Public Use
  Company Number: US-GLAXOSMITHKLINE-A1052072A

PATIENT
  Age: 84 Year
  Sex: Female
  Weight: 63.6 kg

DRUGS (5)
  1. BREO ELLIPTA [Suspect]
     Indication: CHRONIC OBSTRUCTIVE PULMONARY DISEASE
     Route: 055
     Dates: start: 20131122, end: 20131129
  2. LISINOPRIL [Concomitant]
  3. ESTRADIOL [Concomitant]
  4. SPIRIVA [Concomitant]
  5. LEVOXYL [Concomitant]

REACTIONS (3)
  - Hypertensive emergency [Recovered/Resolved]
  - Headache [Recovered/Resolved]
  - Palpitations [Recovered/Resolved]
